FAERS Safety Report 17009054 (Version 1)
Quarter: 2019Q4

REPORT INFORMATION
  Report Type: Spontaneous
  Country: US (occurrence: US)
  Receive Date: 20190930
  Receipt Date: 20190930
  Transmission Date: 20200122
  Serious: No
  Sender: FDA-Public Use
  Company Number: None

PATIENT
  Age: 55 Year
  Sex: Female

DRUGS (1)
  1. CYCLOSPORINE MODIFIED [Suspect]
     Active Substance: CYCLOSPORINE
     Indication: DERMATITIS
     Route: 048
     Dates: start: 20190722

REACTIONS (4)
  - Inappropriate schedule of product administration [None]
  - Condition aggravated [None]
  - Dermatitis [None]
  - Wrong technique in product usage process [None]

NARRATIVE: CASE EVENT DATE: 20190930
